FAERS Safety Report 5005848-0 (Version None)
Quarter: 2006Q2

REPORT INFORMATION
  Report Type: 
  Country: None (occurrence: None)
  Receive Date: 20060515
  Receipt Date: 20060427
  Transmission Date: 20061013
  Serious: Yes (Other)
  Sender: FDA-Public Use
  Company Number: 007128

PATIENT
  Age: 65 Year
  Sex: Female
  Weight: 77 kg

DRUGS (4)
  1. DANAZOL [Suspect]
     Indication: ANGIONEUROTIC OEDEMA
     Dosage: 1 CAPS., ORAL
     Route: 048
     Dates: start: 19700101, end: 20060201
  2. LANTUS [Suspect]
     Dosage: SUBCUTANEOUS
     Route: 058
  3. ALDACTONE [Concomitant]
  4. ALLEGRA [Concomitant]

REACTIONS (12)
  - BACK PAIN [None]
  - DIABETES MELLITUS [None]
  - DRUG INTERACTION INHIBITION [None]
  - DRUG INTOLERANCE [None]
  - FIBROMYALGIA [None]
  - FLUID RETENTION [None]
  - JOINT LOCK [None]
  - JOINT SWELLING [None]
  - MUSCLE SPASMS [None]
  - MYALGIA [None]
  - OSTEOARTHRITIS [None]
  - VISION BLURRED [None]
